FAERS Safety Report 16268807 (Version 1)
Quarter: 2019Q2

REPORT INFORMATION
  Report Type: Spontaneous
  Country: NL (occurrence: NL)
  Receive Date: 20190503
  Receipt Date: 20190503
  Transmission Date: 20190711
  Serious: Yes (Other)
  Sender: FDA-Public Use
  Company Number: NL-ACCORD-125444

PATIENT
  Sex: Male
  Weight: 66 kg

DRUGS (4)
  1. AMLODIPINE [Suspect]
     Active Substance: AMLODIPINE BESYLATE
     Indication: HYPERTENSION
     Dosage: 5 MG, 1 X PER DAY
     Dates: start: 201802
  2. ATENOLOL/ATENOLOL HYDROCHLORIDE [Concomitant]
     Dates: start: 1990
  3. APIXABAN [Concomitant]
     Active Substance: APIXABAN
     Dates: start: 2017
  4. ALLOPURINOL. [Concomitant]
     Active Substance: ALLOPURINOL
     Dates: start: 2012

REACTIONS (2)
  - Tinnitus [Recovering/Resolving]
  - Deafness [Not Recovered/Not Resolved]
